FAERS Safety Report 11627759 (Version 2)
Quarter: 2015Q4

REPORT INFORMATION
  Report Type: Spontaneous
  Country: UA (occurrence: UA)
  Receive Date: 20151014
  Receipt Date: 20151021
  Transmission Date: 20160304
  Serious: Yes (Death)
  Sender: FDA-Public Use
  Company Number: UA-ASTRAZENECA-2015SE98827

PATIENT
  Age: 79 Year
  Sex: Female
  Weight: 76 kg

DRUGS (9)
  1. PERINDOPRIL [Concomitant]
     Active Substance: PERINDOPRIL
  2. BISOPROLOL [Concomitant]
     Active Substance: BISOPROLOL
  3. STREPTOKINASE [Suspect]
     Active Substance: STREPTOKINASE
     Indication: ACUTE MYOCARDIAL INFARCTION
     Route: 042
     Dates: start: 20151009, end: 20151009
  4. BRILINTA [Suspect]
     Active Substance: TICAGRELOR
     Indication: ACUTE MYOCARDIAL INFARCTION
     Route: 048
     Dates: start: 20151009, end: 20151009
  5. SIOFOR [Concomitant]
     Active Substance: METFORMIN HYDROCHLORIDE
  6. ASPIRIN. [Suspect]
     Active Substance: ASPIRIN
     Indication: ACUTE MYOCARDIAL INFARCTION
     Route: 048
     Dates: start: 20151009, end: 20151009
  7. HEPARIN [Suspect]
     Active Substance: HEPARIN SODIUM
     Indication: ACUTE MYOCARDIAL INFARCTION
     Route: 042
     Dates: start: 20151009, end: 20151009
  8. BRILINTA [Suspect]
     Active Substance: TICAGRELOR
     Indication: ACUTE MYOCARDIAL INFARCTION
     Route: 048
     Dates: start: 20151009, end: 20151009
  9. AMARYL [Concomitant]
     Active Substance: GLIMEPIRIDE

REACTIONS (3)
  - Vomiting [Unknown]
  - Nausea [Unknown]
  - Coma [Fatal]

NARRATIVE: CASE EVENT DATE: 20151009
